FAERS Safety Report 14928204 (Version 1)
Quarter: 2018Q2

REPORT INFORMATION
  Report Type: Spontaneous
  Country: BE (occurrence: BE)
  Receive Date: 20180523
  Receipt Date: 20180523
  Transmission Date: 20180711
  Serious: Yes (Other)
  Sender: FDA-Public Use
  Company Number: BE-PFIZER INC-2018206424

PATIENT
  Age: 51 Year
  Sex: Female
  Weight: 82 kg

DRUGS (10)
  1. PACLITAXEL. [Suspect]
     Active Substance: PACLITAXEL
     Indication: BREAST CANCER FEMALE
     Dosage: 157 MG, WEEKLY
     Route: 042
     Dates: start: 20171024, end: 20171226
  2. BISOPROLOL EG [Concomitant]
     Active Substance: BISOPROLOL
     Indication: HYPERTENSION
     Dosage: 7.5 MG, ONCE A DAY
     Route: 048
  3. DEXAMETHASONE. [Concomitant]
     Active Substance: DEXAMETHASONE
     Indication: PREMEDICATION
     Dosage: 8 MG, WEEKLY (THE DAY AFTER CHEMOTHERAPY)
     Route: 048
     Dates: start: 20171024, end: 20171226
  4. AACIDEXAM [Concomitant]
     Active Substance: DEXAMETHASONE
     Indication: PREMEDICATION
     Dosage: 10 MG, WEEKLY
     Route: 042
     Dates: start: 20171024, end: 20171226
  5. CARBOPLATINE TEVA [Suspect]
     Active Substance: CARBOPLATIN
     Dosage: 230 MG, WEEKLY
     Route: 042
     Dates: start: 20171024, end: 20171226
  6. LITICAN [Concomitant]
     Active Substance: ALIZAPRIDE HYDROCHLORIDE
     Indication: PREMEDICATION
     Dosage: 100 MG, WEEKLY
     Route: 042
     Dates: start: 20171024, end: 20171226
  7. AMLOR [Concomitant]
     Active Substance: AMLODIPINE BESYLATE
     Indication: HYPERTENSION
     Dosage: 10 MG, ONCE A DAY
     Route: 048
  8. CARBOPLATIN. [Suspect]
     Active Substance: CARBOPLATIN
     Dosage: 230 MG, WEEKLY
     Route: 042
     Dates: start: 20171024, end: 20171226
  9. ZANTAC [Concomitant]
     Active Substance: RANITIDINE HYDROCHLORIDE
     Indication: PREMEDICATION
     Dosage: 50 MG, WEEKLY
     Route: 042
     Dates: start: 20171024, end: 20171226
  10. AZICALM [Concomitant]
     Indication: PREMEDICATION
     Dosage: 50 MG, WEEKLY
     Route: 048
     Dates: start: 20171024, end: 20171226

REACTIONS (3)
  - Hot flush [Unknown]
  - Visual acuity reduced [Unknown]
  - Vision blurred [Unknown]

NARRATIVE: CASE EVENT DATE: 20171228
